FAERS Safety Report 26183207 (Version 1)
Quarter: 2025Q4

REPORT INFORMATION
  Report Type: Spontaneous
  Country: US (occurrence: US)
  Receive Date: 20251221
  Receipt Date: 20251221
  Transmission Date: 20260117
  Serious: Yes (Other)
  Sender: AUROBINDO
  Company Number: US-MLMSERVICE-20251202-PI732834-00121-1

PATIENT
  Age: 22 Year
  Sex: Male

DRUGS (2)
  1. DILTIAZEM [Suspect]
     Active Substance: DILTIAZEM
     Indication: Atrial fibrillation
     Dosage: 20 MILLIGRAM
  2. DILTIAZEM [Suspect]
     Active Substance: DILTIAZEM
     Dosage: CONTINUOUS INFUSION OF 10 MG PER HOUR
     Route: 065

REACTIONS (1)
  - Supraventricular tachycardia [Recovered/Resolved]
